FAERS Safety Report 6259250-4 (Version None)
Quarter: 2009Q3

REPORT INFORMATION
  Report Type: 
  Country: None (occurrence: None)
  Receive Date: 20090707
  Receipt Date: 20090630
  Transmission Date: 20100115
  Serious: Yes (Other)
  Sender: FDA-Public Use
  Company Number: CA-AMGEN-KDL327905

PATIENT
  Sex: Male
  Weight: 75.8 kg

DRUGS (1)
  1. ENBREL [Suspect]
     Indication: ANKYLOSING SPONDYLITIS
     Dates: start: 20081101, end: 20090501

REACTIONS (3)
  - INJECTION SITE MASS [None]
  - IRITIS [None]
  - NASOPHARYNGITIS [None]
